FAERS Safety Report 9524563 (Version 1)
Quarter: 2013Q3

REPORT INFORMATION
  Report Type: Spontaneous
  Country: GB (occurrence: None)
  Receive Date: 20130912
  Receipt Date: 20130912
  Transmission Date: 20140515
  Serious: Yes (Hospitalization)
  Sender: FDA-Public Use
  Company Number: AUR-APL-2013-07461

PATIENT
  Age: 78 Year
  Sex: Male

DRUGS (8)
  1. CLOPIDOGREL [Suspect]
     Indication: CORONARY ARTERY BYPASS
     Route: 048
     Dates: start: 201301
  2. NAPROXEN [Suspect]
     Indication: SCIATICA
     Dosage: 1000 MG (500 MG, 2 IN 1 D), ORAL
     Route: 048
     Dates: start: 20130731
  3. ASPIRIN (ACETYLSALICYLIC ACID) [Suspect]
     Indication: CORONARY ARTERY BYPASS
     Route: 048
     Dates: start: 201301
  4. AMITRIPTYLINE (AMITRIPTYLINE) [Concomitant]
  5. BISOPROLOL (BISOPROLOL) [Concomitant]
  6. INDAPAMIDE (INDAPAMIDE) [Concomitant]
  7. RAMIPRIL (RAMIPRIL) [Concomitant]
  8. RANITIDINE (RANIITIDINE) [Concomitant]

REACTIONS (2)
  - Rectal haemorrhage [None]
  - Haemoglobin decreased [None]
